FAERS Safety Report 13325058 (Version 3)
Quarter: 2017Q3

REPORT INFORMATION
  Report Type: Spontaneous
  Country: JP (occurrence: JP)
  Receive Date: 20170310
  Receipt Date: 20170809
  Transmission Date: 20171127
  Serious: Yes (Death, Hospitalization, Other)
  Sender: FDA-Public Use
  Company Number: PHHY2014JP178566

PATIENT
  Age: 62 Year
  Sex: Female
  Weight: 50 kg

DRUGS (4)
  1. NEXIUM [Concomitant]
     Active Substance: ESOMEPRAZOLE MAGNESIUM
     Indication: PRODUCT USED FOR UNKNOWN INDICATION
     Dosage: 20 MG, QD
     Route: 048
     Dates: start: 20140904, end: 20140918
  2. PAZOPANIB [Suspect]
     Active Substance: PAZOPANIB
     Indication: SOFT TISSUE SARCOMA
  3. GEMCITABINE HYDROCHLORIDE. [Concomitant]
     Active Substance: GEMCITABINE HYDROCHLORIDE
     Indication: PRODUCT USED FOR UNKNOWN INDICATION
     Dosage: UNK
     Route: 065
     Dates: start: 20140612, end: 20140710
  4. PAZOPANIB [Suspect]
     Active Substance: PAZOPANIB
     Indication: LEIOMYOSARCOMA METASTATIC
     Dosage: 400 MG, QD
     Route: 048
     Dates: start: 20140828, end: 20140911

REACTIONS (17)
  - Multiple organ dysfunction syndrome [Fatal]
  - Vomiting [Unknown]
  - Renal failure [Unknown]
  - Blood creatine phosphokinase increased [Unknown]
  - Rhabdomyolysis [Unknown]
  - Asthenia [Unknown]
  - Hepatic function abnormal [Fatal]
  - Tumour lysis syndrome [Unknown]
  - Metabolic acidosis [Unknown]
  - Diarrhoea [Unknown]
  - Urine output decreased [Unknown]
  - Renal impairment [Fatal]
  - Dehydration [Unknown]
  - Peritonitis [Fatal]
  - Hepatic failure [Unknown]
  - Blood uric acid increased [Unknown]
  - Abdominal pain [Unknown]

NARRATIVE: CASE EVENT DATE: 201409
